FAERS Safety Report 4854369-4 (Version None)
Quarter: 2005Q4

REPORT INFORMATION
  Report Type: 
  Country: None (occurrence: None)
  Receive Date: 20051213
  Receipt Date: 20051213
  Transmission Date: 20060501
  Serious: Yes (Hospitalization)
  Sender: FDA-Public Use
  Company Number: None

PATIENT
  Age: 70 Year
  Sex: Female

DRUGS (7)
  1. CAPECITABINE [Suspect]
     Indication: CHEMOTHERAPY
     Dosage: 2500MG/M2/DAY BID FOR 14 DOSES
     Dates: start: 20051206, end: 20051208
  2. OXALIPLATIN [Suspect]
     Indication: CHEMOTHERAPY
     Dosage: 65MG/M2 IV Q 2 WEEKS
     Route: 042
     Dates: start: 20051206
  3. PRILOSEC [Concomitant]
  4. LIPITOR [Concomitant]
  5. NORVASC [Concomitant]
  6. ATENOLOL WITH HYDROCHLOROTHIAZIDE [Concomitant]
  7. XELODA [Concomitant]

REACTIONS (2)
  - METASTATIC NEOPLASM [None]
  - SMALL INTESTINAL OBSTRUCTION [None]
